FAERS Safety Report 8007881-3 (Version None)
Quarter: 2011Q4

REPORT INFORMATION
  Report Type: 
  Country: None (occurrence: None)
  Receive Date: 20111202
  Receipt Date: 20111118
  Transmission Date: 20120403
  Serious: Yes (Hospitalization, Disabling, Other)
  Sender: FDA-Public Use
  Company Number: 2011PROUSA00677

PATIENT
  Age: 65 Year
  Sex: Male
  Weight: 91.2 kg

DRUGS (4)
  1. PROVENGE [Suspect]
     Indication: PROSTATE CANCER METASTATIC
     Dosage: 250 ML, SINGLE, INTRAVENOUS
     Route: 042
     Dates: start: 20110919, end: 20110919
  2. PROVENGE [Suspect]
     Dosage: 250 ML, SINGLE, INTRAVENOUS
     Route: 042
     Dates: start: 20111017, end: 20111017
  3. PROVENGE [Suspect]
     Dosage: 250 ML, SINGLE, INTRAVENOUS
     Route: 042
     Dates: start: 20111003, end: 20111003
  4. MORPHINE [Concomitant]

REACTIONS (16)
  - ANXIETY [None]
  - DISORIENTATION [None]
  - PAIN [None]
  - CRYING [None]
  - BONE PAIN [None]
  - BLOOD PRODUCT TRANSFUSION [None]
  - ARTHRALGIA [None]
  - PYREXIA [None]
  - WEIGHT DECREASED [None]
  - MOVEMENT DISORDER [None]
  - NAUSEA [None]
  - CONSTIPATION [None]
  - JOINT STIFFNESS [None]
  - EMOTIONAL DISORDER [None]
  - DEHYDRATION [None]
  - QUALITY OF LIFE DECREASED [None]
